FAERS Safety Report 6100955-3 (Version None)
Quarter: 2009Q1

REPORT INFORMATION
  Report Type: 
  Country: None (occurrence: None)
  Receive Date: 20090224
  Receipt Date: 20090213
  Transmission Date: 20090719
  Serious: Yes (Hospitalization)
  Sender: FDA-Public Use
  Company Number: B0560162A

PATIENT
  Sex: 0

DRUGS (1)
  1. SUMATRIPTAN SUCCINATE [Suspect]

REACTIONS (1)
  - TORSADE DE POINTES [None]
